FAERS Safety Report 4940610-6 (Version None)
Quarter: 2006Q1

REPORT INFORMATION
  Report Type: 
  Country: None (occurrence: None)
  Receive Date: 20060127
  Receipt Date: 20050909
  Transmission Date: 20060701
  Serious: Yes (Other)
  Sender: FDA-Public Use
  Company Number: 2005RL000115

PATIENT
  Age: 61 Year
  Sex: Male
  Weight: 73.9363 kg

DRUGS (1)
  1. RYTHMOL [Suspect]
     Indication: ATRIAL FIBRILLATION
     Dosage: 325 MG;TID;PO
     Route: 048
     Dates: start: 20000101, end: 20050101

REACTIONS (5)
  - ATRIAL FLUTTER [None]
  - CARDIAC FLUTTER [None]
  - DIZZINESS [None]
  - PALPITATIONS [None]
  - PARAESTHESIA [None]
